FAERS Safety Report 6870852-4 (Version None)
Quarter: 2010Q3

REPORT INFORMATION
  Report Type: 
  Country: None (occurrence: None)
  Receive Date: 20100721
  Receipt Date: 20100709
  Transmission Date: 20110219
  Serious: Yes (Death, Hospitalization)
  Sender: FDA-Public Use
  Company Number: 2010085632

PATIENT
  Age: 53 Year
  Sex: Male

DRUGS (12)
  1. FRAGMIN [Suspect]
     Dates: start: 20100408, end: 20100513
  2. ASPIRIN [Suspect]
     Indication: ACUTE MYOCARDIAL INFARCTION
     Dosage: 75 MG, ORAL
     Route: 048
     Dates: start: 20100317, end: 20100513
  3. ASPIRIN [Suspect]
     Indication: HYPERTENSION
     Dosage: 75 MG, ORAL
     Route: 048
     Dates: start: 20100317, end: 20100513
  4. PLAVIX [Suspect]
     Indication: ACUTE MYOCARDIAL INFARCTION
     Dosage: 75 MG DAILY, ORAL
     Route: 048
     Dates: start: 20100317, end: 20100513
  5. PLAVIX [Suspect]
     Indication: HYPERTENSION
     Dosage: 75 MG DAILY, ORAL
     Route: 048
     Dates: start: 20100317, end: 20100513
  6. MOVICOL (MACROGOL, POTASSIUM CHLORIDE, SODIUM BICARBONATE, SODIUM CHLO [Concomitant]
  7. GABAPENTIN [Concomitant]
  8. CITALOPRAM HYDROBROMIDE [Concomitant]
  9. METOPROLOL TARTRATE [Concomitant]
  10. CITODON (CODEINE PHOSPHATE, PARACETAMOL) [Concomitant]
  11. AMLODIPINE [Concomitant]
  12. SODIUM PICOSULFATE (SODIUM PICOSULFATE) [Concomitant]

REACTIONS (1)
  - CEREBRAL HAEMORRHAGE [None]
